FAERS Safety Report 17744860 (Version 1)
Quarter: 2020Q2

REPORT INFORMATION
  Report Type: Spontaneous
  Country: US (occurrence: US)
  Receive Date: 20200504
  Receipt Date: 20200504
  Transmission Date: 20200714
  Serious: No
  Sender: FDA-Public Use
  Company Number: US-BAUSCH-BL-2020-011198

PATIENT
  Age: 90 Year
  Sex: Female
  Weight: 45.4 kg

DRUGS (1)
  1. ISOSORBIDE. [Suspect]
     Active Substance: ISOSORBIDE
     Indication: PRODUCT USED FOR UNKNOWN INDICATION
     Route: 065

REACTIONS (3)
  - Drug hypersensitivity [Unknown]
  - Nausea [Unknown]
  - Diarrhoea [Unknown]
